FAERS Safety Report 12833508 (Version 2)
Quarter: 2016Q4

REPORT INFORMATION
  Report Type: Spontaneous
  Country: US (occurrence: US)
  Receive Date: 20161010
  Receipt Date: 20161213
  Transmission Date: 20170207
  Serious: Yes (Hospitalization, Other)
  Sender: FDA-Public Use
  Company Number: US-BAYER-2016-192782

PATIENT
  Age: 65 Year
  Sex: Male

DRUGS (20)
  1. LEVAQUIN [Suspect]
     Active Substance: LEVOFLOXACIN
     Indication: CHRONIC OBSTRUCTIVE PULMONARY DISEASE
     Dosage: 500 MG, UNK
     Route: 048
     Dates: start: 20100607, end: 20100614
  2. LEVAQUIN [Suspect]
     Active Substance: LEVOFLOXACIN
     Indication: CHRONIC OBSTRUCTIVE PULMONARY DISEASE
     Dosage: 500 MG, UNK
     Dates: start: 20140617
  3. IPRATROPIUM [Concomitant]
     Active Substance: IPRATROPIUM
  4. CHOLESTEROL [Concomitant]
     Active Substance: CHOLESTEROL
  5. AVELOX [Suspect]
     Active Substance: MOXIFLOXACIN HYDROCHLORIDE
     Indication: LUNG DISORDER
     Dosage: 400 MG, UNK
     Route: 048
     Dates: start: 20120126
  6. AVELOX [Suspect]
     Active Substance: MOXIFLOXACIN HYDROCHLORIDE
     Indication: LUNG DISORDER
     Dosage: 400 MG, UNK
     Dates: start: 20100103
  7. AVELOX [Suspect]
     Active Substance: MOXIFLOXACIN HYDROCHLORIDE
     Indication: LUNG DISORDER
     Dosage: 400 MG, UNK
     Route: 048
     Dates: start: 20100521
  8. LEVAQUIN [Suspect]
     Active Substance: LEVOFLOXACIN
     Indication: ACUTE SINUSITIS
     Dosage: 500 MG, UNK
     Dates: start: 20100609, end: 20160610
  9. LEVAQUIN [Suspect]
     Active Substance: LEVOFLOXACIN
     Indication: CHRONIC OBSTRUCTIVE PULMONARY DISEASE
     Dosage: 500 MG, UNK
     Dates: start: 20131010, end: 20131020
  10. ADVAIR HFA [Concomitant]
     Active Substance: FLUTICASONE PROPIONATE\SALMETEROL XINAFOATE
  11. LEVAQUIN [Suspect]
     Active Substance: LEVOFLOXACIN
     Indication: CHRONIC OBSTRUCTIVE PULMONARY DISEASE
     Dosage: 500 MG, UNK
     Dates: start: 20100626, end: 20120705
  12. VITAMIN B12 [Concomitant]
     Active Substance: CYANOCOBALAMIN
  13. PREDNISONE. [Concomitant]
     Active Substance: PREDNISONE
  14. METHYLPREDNISOLONE. [Concomitant]
     Active Substance: METHYLPREDNISOLONE
  15. LEVAQUIN [Suspect]
     Active Substance: LEVOFLOXACIN
     Indication: DIVERTICULITIS
     Dosage: 500 MG, UNK
     Dates: start: 20100730, end: 20100806
  16. LEVAQUIN [Suspect]
     Active Substance: LEVOFLOXACIN
     Indication: CHRONIC OBSTRUCTIVE PULMONARY DISEASE
     Dosage: 500 MG, UNK
     Dates: start: 20120828, end: 20120904
  17. LEVAQUIN [Suspect]
     Active Substance: LEVOFLOXACIN
     Indication: CHRONIC OBSTRUCTIVE PULMONARY DISEASE
     Dosage: 500 MG, UNK
     Dates: start: 20150113
  18. ALBUTEROL. [Concomitant]
     Active Substance: ALBUTEROL
  19. LEVAQUIN [Suspect]
     Active Substance: LEVOFLOXACIN
     Indication: CHRONIC OBSTRUCTIVE PULMONARY DISEASE
     Dosage: 500 MG, UNK
     Dates: start: 20140103, end: 20140125
  20. LEVAQUIN [Suspect]
     Active Substance: LEVOFLOXACIN
     Indication: CHRONIC OBSTRUCTIVE PULMONARY DISEASE
     Dosage: 500 MG, UNK
     Dates: start: 20140812

REACTIONS (10)
  - Asthenia [Not Recovered/Not Resolved]
  - Neuropathy peripheral [None]
  - Paraesthesia [None]
  - Pruritus [Not Recovered/Not Resolved]
  - Pain in extremity [Not Recovered/Not Resolved]
  - Burning sensation [Not Recovered/Not Resolved]
  - Somnambulism [None]
  - Hypoaesthesia [Not Recovered/Not Resolved]
  - Muscle spasms [None]
  - Restless legs syndrome [None]

NARRATIVE: CASE EVENT DATE: 201006
